FAERS Safety Report 25571235 (Version 1)
Quarter: 2025Q3

REPORT INFORMATION
  Report Type: Spontaneous
  Country: US (occurrence: None)
  Receive Date: 20250717
  Receipt Date: 20250717
  Transmission Date: 20251020
  Serious: Yes (Other)
  Sender: AXSOME THERAPEUTICS, INC.
  Company Number: US-Axsome Therapeutics, Inc.-AXS202507-001233

PATIENT
  Sex: Female

DRUGS (2)
  1. SUNOSI [Suspect]
     Active Substance: SOLRIAMFETOL
     Indication: Hypersomnia
     Route: 048
  2. SUNOSI [Suspect]
     Active Substance: SOLRIAMFETOL
     Indication: Sleep apnoea syndrome

REACTIONS (3)
  - Tardive dyskinesia [Unknown]
  - Decreased appetite [Unknown]
  - Product use in unapproved indication [Unknown]
